FAERS Safety Report 18817055 (Version 9)
Quarter: 2021Q2

REPORT INFORMATION
  Report Type: Report from Study
  Country: AU (occurrence: AU)
  Receive Date: 20210201
  Receipt Date: 20210426
  Transmission Date: 20210717
  Serious: Yes (Hospitalization)
  Sender: FDA-Public Use
  Company Number: AU-ROCHE-2755521

PATIENT
  Age: 60 Year
  Sex: Male
  Weight: 90.75 kg

DRUGS (51)
  1. OXYCODONE [Concomitant]
     Active Substance: OXYCODONE
     Indication: PAIN
     Route: 048
     Dates: start: 20210204, end: 20210223
  2. PARACETAMOL [Concomitant]
     Active Substance: ACETAMINOPHEN
     Indication: PREMEDICATION
     Route: 048
     Dates: start: 20210111, end: 20210111
  3. MAGNESIUM ASPARTATE [Concomitant]
     Active Substance: MAGNESIUM ASPARTATE
     Route: 048
     Dates: start: 20210201, end: 20210223
  4. ROMIPLOSTIM [Concomitant]
     Active Substance: ROMIPLOSTIM
     Indication: PLATELET COUNT DECREASED
     Route: 058
     Dates: start: 20210216, end: 20210216
  5. ONDANSETRON [Concomitant]
     Active Substance: ONDANSETRON
     Route: 048
     Dates: start: 20191206, end: 20210223
  6. NORMAL SALINE [Concomitant]
     Active Substance: SODIUM CHLORIDE
     Indication: PREMEDICATION
     Route: 042
     Dates: start: 20210111, end: 20210111
  7. PIPERACILLIN AND TAZOBACTAM [Concomitant]
     Active Substance: PIPERACILLIN SODIUM\TAZOBACTAM SODIUM
     Route: 042
     Dates: start: 20210122
  8. MORPHINE INJECTION [Concomitant]
     Active Substance: MORPHINE
     Route: 058
     Dates: start: 20210223
  9. METOCOLPRAMIDE [Concomitant]
     Route: 048
     Dates: start: 20210207, end: 20210223
  10. NALOXONE HYDROCHLORIDE;OXYCODONE HYDROCHLORIDE [Concomitant]
     Active Substance: NALOXONE HYDROCHLORIDE\OXYCODONE HYDROCHLORIDE
     Indication: ABDOMINAL PAIN
     Route: 048
     Dates: start: 20210114, end: 20210223
  11. PARACETAMOL [Concomitant]
     Active Substance: ACETAMINOPHEN
     Indication: PAIN
     Route: 048
     Dates: start: 20210108, end: 20210223
  12. LORATADINE. [Concomitant]
     Active Substance: LORATADINE
     Route: 048
     Dates: start: 20210118, end: 20210118
  13. MAGNESIUM SULFATE. [Concomitant]
     Active Substance: MAGNESIUM SULFATE
     Dosage: 20 OTHER
     Route: 042
     Dates: start: 20210213, end: 20210213
  14. NYSTATIN. [Concomitant]
     Active Substance: NYSTATIN
     Indication: ORAL CANDIDIASIS
     Route: 048
     Dates: start: 20210202, end: 20210223
  15. PLATELETS [Concomitant]
     Active Substance: HUMAN PLATELET, ALLOGENIC
     Indication: PLATELET COUNT DECREASED
     Dosage: 1 UNIT
     Route: 042
     Dates: start: 20210207, end: 20210207
  16. PLATELETS [Concomitant]
     Active Substance: HUMAN PLATELET, ALLOGENIC
     Dosage: 1 UNIT
     Route: 042
     Dates: start: 20210215, end: 20210215
  17. DOCUSATE/SENNOSIDES [Concomitant]
     Active Substance: DOCUSATE SODIUM\SENNOSIDES A AND B
     Indication: CONSTIPATION
     Route: 048
     Dates: start: 20210217
  18. MORPHINE INJECTION [Concomitant]
     Active Substance: MORPHINE
     Route: 058
     Dates: start: 20210223
  19. HALOPERIDOL. [Concomitant]
     Active Substance: HALOPERIDOL
     Route: 058
     Dates: start: 20210223
  20. VALACICLOVIR [Concomitant]
     Active Substance: VALACYCLOVIR HYDROCHLORIDE
     Route: 048
     Dates: start: 20191022, end: 20210223
  21. PANTOPRAZOLE [Concomitant]
     Active Substance: PANTOPRAZOLE
     Route: 048
     Dates: start: 2019, end: 20210223
  22. OXYCODONE [Concomitant]
     Active Substance: OXYCODONE
     Indication: ABDOMINAL PAIN
     Route: 048
     Dates: start: 20210114, end: 20210223
  23. DEXAMETHASONE. [Concomitant]
     Active Substance: DEXAMETHASONE
     Indication: PREMEDICATION
     Route: 048
     Dates: start: 20200111, end: 20210111
  24. AMOXICILLIN. [Concomitant]
     Active Substance: AMOXICILLIN
     Route: 048
     Dates: start: 20210125, end: 20210223
  25. GLYCOPYRRONIUM BROMIDE [Concomitant]
     Active Substance: GLYCOPYRROLATE
     Route: 058
     Dates: start: 20210223
  26. MACROGOL [Concomitant]
     Active Substance: POLYETHYLENE GLYCOLS
     Route: 048
     Dates: start: 20210129, end: 20210223
  27. FILGRASTIM [Concomitant]
     Active Substance: FILGRASTIM
     Indication: NEUTROPHIL COUNT DECREASED
     Route: 058
     Dates: start: 20210127, end: 20210223
  28. CLONAZEPAM. [Concomitant]
     Active Substance: CLONAZEPAM
     Route: 058
     Dates: start: 20210223
  29. NORMAL SALINE [Concomitant]
     Active Substance: SODIUM CHLORIDE
     Indication: HYPOTENSION
     Route: 042
     Dates: start: 20210114, end: 20210114
  30. GENTAMICIN. [Concomitant]
     Active Substance: GENTAMICIN
     Route: 042
     Dates: start: 20210121, end: 20210121
  31. BACTRIM [Concomitant]
     Active Substance: SULFAMETHOXAZOLE\TRIMETHOPRIM
     Route: 048
     Dates: start: 20191022, end: 20210223
  32. MIRTAZAPINE. [Concomitant]
     Active Substance: MIRTAZAPINE
     Route: 048
     Dates: start: 20210204, end: 20210223
  33. MAGNESIUM SULFATE. [Concomitant]
     Active Substance: MAGNESIUM SULFATE
     Dosage: 20 OTHER
     Route: 042
     Dates: start: 20210125, end: 20210125
  34. OLANZAPINE. [Concomitant]
     Active Substance: OLANZAPINE
     Indication: MANIA
     Route: 048
     Dates: start: 20201220
  35. METOCOLPRAMIDE [Concomitant]
     Route: 048
     Dates: start: 20191029, end: 20210223
  36. DEXAMETHASONE. [Concomitant]
     Active Substance: DEXAMETHASONE
     Route: 048
     Dates: start: 20210118, end: 20210118
  37. FILGRASTIM [Concomitant]
     Active Substance: FILGRASTIM
     Route: 058
     Dates: start: 20210215, end: 20210215
  38. PHOSPHORUS [Concomitant]
     Active Substance: PHOSPHORUS
     Route: 048
     Dates: start: 20210126, end: 20210126
  39. NALOXONE;OXYCODONE [Concomitant]
     Active Substance: NALOXONE HYDROCHLORIDE\OXYCODONE HYDROCHLORIDE
     Indication: ANALGESIC THERAPY
     Route: 048
     Dates: start: 20210123, end: 20210123
  40. PLATELETS [Concomitant]
     Active Substance: HUMAN PLATELET, ALLOGENIC
     Dosage: 2 UNIT
     Route: 042
     Dates: start: 20210216, end: 20210216
  41. MOSUNETUZUMAB. [Suspect]
     Active Substance: MOSUNETUZUMAB
     Indication: B-CELL LYMPHOMA
     Dosage: DATE OF MOST RECENT DOSE OF MOSUNETUZUMAB OF 15 MG PRIOR TO SAE ONSET: 18/JAN/2021 AT 12:20
     Route: 058
     Dates: start: 20210111
  42. MOSUNETUZUMAB. [Suspect]
     Active Substance: MOSUNETUZUMAB
     Indication: CHRONIC LYMPHOCYTIC LEUKAEMIA
  43. TOCILIZUMAB. [Suspect]
     Active Substance: TOCILIZUMAB
     Indication: CYTOKINE RELEASE SYNDROME
     Dosage: DATE OF MOST RECENT DOSE OF TOCILIZUMAB (800 MG) PRIOR TO AE ONSET: 21/JAN/2021 AT 16.15
     Route: 042
     Dates: start: 20210121
  44. LEVOTHYROXINE. [Concomitant]
     Active Substance: LEVOTHYROXINE
     Indication: BASEDOW^S DISEASE
     Route: 048
     Dates: start: 2012, end: 20210223
  45. FLUCONAZOLE. [Concomitant]
     Active Substance: FLUCONAZOLE
     Route: 048
     Dates: start: 20191022, end: 20210223
  46. NORMAL SALINE [Concomitant]
     Active Substance: SODIUM CHLORIDE
     Route: 042
     Dates: start: 20210118, end: 20210118
  47. PARACETAMOL [Concomitant]
     Active Substance: ACETAMINOPHEN
     Indication: PYREXIA
     Route: 048
     Dates: start: 20210118, end: 20210118
  48. LORATADINE. [Concomitant]
     Active Substance: LORATADINE
     Indication: PREMEDICATION
     Route: 048
     Dates: start: 20210111, end: 20210111
  49. ROSUVASTATIN. [Concomitant]
     Active Substance: ROSUVASTATIN
     Indication: BLOOD CHOLESTEROL INCREASED
     Route: 048
     Dates: end: 20210223
  50. PAROXETINE. [Concomitant]
     Active Substance: PAROXETINE
     Indication: DEPRESSION
     Route: 048
  51. MAGNESIUM SULFATE. [Concomitant]
     Active Substance: MAGNESIUM SULFATE
     Dosage: 20 OTHER
     Route: 042
     Dates: start: 20210216, end: 20210216

REACTIONS (4)
  - Cognitive disorder [Not Recovered/Not Resolved]
  - Cytokine release syndrome [Recovered/Resolved]
  - Depressed level of consciousness [Not Recovered/Not Resolved]
  - Febrile neutropenia [Recovered/Resolved]

NARRATIVE: CASE EVENT DATE: 20210115
